FAERS Safety Report 7626748-3 (Version None)
Quarter: 2011Q3

REPORT INFORMATION
  Report Type: 
  Country: None (occurrence: None)
  Receive Date: 20110721
  Receipt Date: 20110708
  Transmission Date: 20111222
  Serious: Yes (Other)
  Sender: FDA-Public Use
  Company Number: US-ELI_LILLY_AND_COMPANY-US201105000259

PATIENT
  Sex: Female
  Weight: 125.17 kg

DRUGS (7)
  1. DULCOLAX [Concomitant]
     Dosage: UNK, UNKNOWN
     Route: 065
  2. NORCO [Concomitant]
     Dosage: UNK, UNKNOWN
     Route: 065
  3. VICODIN [Concomitant]
     Dosage: UNK, UNKNOWN
     Route: 065
  4. NEXIUM [Concomitant]
     Dosage: UNK, UNKNOWN
     Route: 065
  5. CYMBALTA [Suspect]
     Indication: PAIN MANAGEMENT
     Dosage: 60 MG, BID
     Route: 065
  6. CYMBALTA [Suspect]
     Dosage: 30 MG, QD
     Dates: start: 20110325, end: 20110426
  7. AMBIEN [Concomitant]
     Dosage: UNK, UNKNOWN
     Route: 065

REACTIONS (5)
  - BLINDNESS [None]
  - VISION BLURRED [None]
  - RETINAL DISORDER [None]
  - VITREOUS FLOATERS [None]
  - CHOROIDITIS [None]
